FAERS Safety Report 10191831 (Version 1)
Quarter: 2014Q2

REPORT INFORMATION
  Report Type: Spontaneous
  Country: US (occurrence: None)
  Receive Date: 20140522
  Receipt Date: 20140522
  Transmission Date: 20141212
  Serious: No
  Sender: FDA-Public Use
  Company Number: None

PATIENT
  Age: 64 Year
  Sex: Female

DRUGS (5)
  1. SOVALDI 400MG GILEAD SCIENCES [Suspect]
     Indication: HEPATITIS C
     Route: 048
  2. RIBAVIRIN [Concomitant]
  3. LEVOTHYROXINE [Concomitant]
  4. CELEBREX [Concomitant]
  5. COMBIPATCH [Concomitant]

REACTIONS (6)
  - Red blood cell count decreased [None]
  - Fatigue [None]
  - Abdominal pain upper [None]
  - Decreased appetite [None]
  - Chromaturia [None]
  - Faeces discoloured [None]
